FAERS Safety Report 15490677 (Version 2)
Quarter: 2018Q4

REPORT INFORMATION
  Report Type: Spontaneous
  Country: CH (occurrence: CH)
  Receive Date: 20181011
  Receipt Date: 20181219
  Transmission Date: 20190205
  Serious: Yes (Hospitalization, Other)
  Sender: FDA-Public Use
  Company Number: CH-009507513-1810CHE004362

PATIENT
  Age: 78 Year
  Sex: Male

DRUGS (14)
  1. TRAMAL [Suspect]
     Active Substance: TRAMADOL
     Dosage: 200 MILLIGRAM, AS NECESSARY
     Route: 048
     Dates: start: 201809, end: 20180921
  2. TRAMAL [Suspect]
     Active Substance: TRAMADOL
     Dosage: 75 MILLIGRAM, AS NECESSARY
     Route: 048
     Dates: start: 20180922, end: 20180926
  3. DIOVAN [Concomitant]
     Active Substance: VALSARTAN
     Dosage: UNK
  4. LAXOBERON [Concomitant]
     Active Substance: SODIUM PICOSULFATE
     Dosage: UNK
  5. JARDIANCE [Concomitant]
     Active Substance: EMPAGLIFLOZIN
     Dosage: UNK
  6. DAFALGAN [Concomitant]
     Active Substance: ACETAMINOPHEN
     Dosage: UNK
  7. VIPIDIA [Concomitant]
     Active Substance: ALOGLIPTIN BENZOATE
     Dosage: UNK
  8. BACTRIM [Suspect]
     Active Substance: SULFAMETHOXAZOLE\TRIMETHOPRIM
     Dosage: 160 MG, BID
     Route: 048
     Dates: start: 20180921
  9. MOVICOL [Concomitant]
     Active Substance: POLYETHYLENE GLYCOL 3350\POTASSIUM CHLORIDE\SODIUM BICARBONATE\SODIUM CHLORIDE
     Dosage: UNK
  10. PURSANA [Concomitant]
     Active Substance: FIG FRUIT OIL\SORBITOL
     Dosage: UNK
  11. INVANZ [Suspect]
     Active Substance: ERTAPENEM SODIUM
     Dosage: 1 GRAM, QD
     Route: 042
     Dates: start: 20180913, end: 20180921
  12. TRAMAL [Suspect]
     Active Substance: TRAMADOL
     Dosage: 50 MG, Q6H
     Route: 048
     Dates: start: 20180922, end: 20180926
  13. AMLODIPINE [Concomitant]
     Active Substance: AMLODIPINE BESYLATE
     Dosage: UNK
  14. GLUCOPHAGE [Concomitant]
     Active Substance: METFORMIN HYDROCHLORIDE
     Dosage: UNK

REACTIONS (5)
  - Serotonin syndrome [Unknown]
  - Nightmare [Unknown]
  - Hallucination [Unknown]
  - Agitation [Unknown]
  - Clonus [Unknown]

NARRATIVE: CASE EVENT DATE: 20180921
